FAERS Safety Report 10081346 (Version 1)
Quarter: 2014Q2

REPORT INFORMATION
  Report Type: Spontaneous
  Country: CH (occurrence: None)
  Receive Date: 20140407
  Receipt Date: 20140407
  Transmission Date: 20141212
  Serious: Yes (Other)
  Sender: FDA-Public Use
  Company Number: SYM-2013-01027

PATIENT
  Age: 55 Year
  Sex: 0

DRUGS (2)
  1. WELLBUTRIN XR [Suspect]
     Indication: DEPRESSION
     Route: 048
     Dates: start: 201302, end: 201302
  2. REMERON (MIRTAZAPINE) [Concomitant]

REACTIONS (2)
  - Electrocardiogram QT prolonged [None]
  - Hyponatraemia [None]
